FAERS Safety Report 6103375-0 (Version None)
Quarter: 2009Q1

REPORT INFORMATION
  Report Type: 
  Country: None (occurrence: None)
  Receive Date: 20090305
  Receipt Date: 20090202
  Transmission Date: 20090719
  Serious: No
  Sender: FDA-Public Use
  Company Number: US-BAYER-200912918NA

PATIENT
  Age: 33 Year
  Sex: Female

DRUGS (2)
  1. YAZ [Suspect]
     Indication: CONTRACEPTION
     Route: 048
     Dates: start: 20080101
  2. ALEVE [Concomitant]
     Indication: HEADACHE

REACTIONS (2)
  - ABNORMAL WITHDRAWAL BLEEDING [None]
  - OFF LABEL USE [None]
